FAERS Safety Report 24986110 (Version 1)
Quarter: 2025Q1

REPORT INFORMATION
  Report Type: Spontaneous
  Country: US (occurrence: US)
  Receive Date: 20250219
  Receipt Date: 20250219
  Transmission Date: 20250409
  Serious: Yes (Hospitalization)
  Sender: NIPPON SHINYAKU
  Company Number: US-NIPPON SHINYAKU-NIP-2025-000011

PATIENT
  Age: 15 Year
  Sex: Male
  Weight: 48.9 kg

DRUGS (4)
  1. VILTOLARSEN [Suspect]
     Active Substance: VILTOLARSEN
     Indication: Duchenne muscular dystrophy
     Dosage: 3900 MG, QWK
     Route: 041
     Dates: start: 20241220
  2. EMFLAZA [Concomitant]
     Active Substance: DEFLAZACORT
     Indication: Product used for unknown indication
     Dosage: 30 MG, QD
     Route: 065
  3. PEPCID AC [Concomitant]
     Active Substance: FAMOTIDINE
     Indication: Product used for unknown indication
     Dosage: 10 MG, QD
     Route: 065
  4. FERROUS SULFATE [Concomitant]
     Active Substance: FERROUS SULFATE
     Indication: Product used for unknown indication
     Dosage: 325 MG, QD
     Route: 065

REACTIONS (2)
  - Fall [Unknown]
  - Multiple fractures [Unknown]

NARRATIVE: CASE EVENT DATE: 20250130
